FAERS Safety Report 24453213 (Version 2)
Quarter: 2024Q4

REPORT INFORMATION
  Report Type: Report from Study
  Country: CA (occurrence: CA)
  Receive Date: 20241017
  Receipt Date: 20241018
  Transmission Date: 20250115
  Serious: No
  Sender: ROCHE
  Company Number: CA-ROCHE-3297146

PATIENT
  Sex: Female

DRUGS (1)
  1. RITUXAN [Suspect]
     Active Substance: RITUXIMAB
     Indication: Neuromyelitis optica spectrum disorder
     Dosage: DRUG DOSE FIRST ADMINISTERED IS UNKNOWN MOREDOSAGEINFO IS NO PIRS AVAILABLE
     Route: 042
     Dates: start: 20161219

REACTIONS (1)
  - B-lymphocyte count decreased [Not Recovered/Not Resolved]
